FAERS Safety Report 8421994-3 (Version None)
Quarter: 2012Q2

REPORT INFORMATION
  Report Type: 
  Country: None (occurrence: None)
  Receive Date: 20120605
  Receipt Date: 20120605
  Transmission Date: 20120825
  Serious: Yes (Life-Threatening, Hospitalization)
  Sender: FDA-Public Use
  Company Number: None

PATIENT
  Age: 71 Year
  Sex: Female
  Weight: 56.246 kg

DRUGS (1)
  1. LOPRESSOR [Suspect]
     Indication: HYPERTENSION
     Dosage: 50 MG TWICE DAILY MOUTH
     Route: 048
     Dates: start: 20120113, end: 20120313

REACTIONS (3)
  - IMPAIRED SELF-CARE [None]
  - ASTHENIA [None]
  - SYNCOPE [None]
